FAERS Safety Report 9393188 (Version 1)
Quarter: 2013Q3

REPORT INFORMATION
  Report Type: Spontaneous
  Country: CA (occurrence: CA)
  Receive Date: 20130710
  Receipt Date: 20130710
  Transmission Date: 20140515
  Serious: Yes (Other)
  Sender: FDA-Public Use
  Company Number: CA-ROCHE-1247267

PATIENT
  Age: 66 Year
  Sex: Female

DRUGS (6)
  1. XELODA [Suspect]
     Indication: PRODUCT USED FOR UNKNOWN INDICATION
     Dosage: TABLET
     Route: 065
  2. TYKERB [Suspect]
     Indication: PRODUCT USED FOR UNKNOWN INDICATION
     Route: 048
  3. ATENOLOL [Concomitant]
     Indication: BLOOD PRESSURE
     Route: 065
  4. DIMENHYDRINATE [Concomitant]
  5. MICARDIS PLUS [Concomitant]
     Dosage: TABLET
     Route: 065
  6. ONDANSETRON [Concomitant]

REACTIONS (2)
  - Malignant neoplasm progression [Unknown]
  - Neoplasm [Unknown]
